FAERS Safety Report 16919286 (Version 1)
Quarter: 2019Q4

REPORT INFORMATION
  Report Type: Spontaneous
  Country: US (occurrence: US)
  Receive Date: 20191014
  Receipt Date: 20191014
  Transmission Date: 20200122
  Serious: Yes (Disabling)
  Sender: FDA-Public Use
  Company Number: None

PATIENT
  Age: 27 Year
  Sex: Female
  Weight: 85.73 kg

DRUGS (20)
  1. EPHEDRINE. [Concomitant]
     Active Substance: EPHEDRINE
     Dates: start: 20190610, end: 20190610
  2. PROMETHAZINE [Concomitant]
     Active Substance: PROMETHAZINE HYDROCHLORIDE
     Dates: start: 20190609, end: 20190621
  3. PROPOFOL. [Concomitant]
     Active Substance: PROPOFOL
     Dates: start: 20190610, end: 20190610
  4. MEPERIDINE (PRN) [Concomitant]
     Dates: start: 20190610, end: 20190615
  5. VANCOMYCIN [Suspect]
     Active Substance: VANCOMYCIN
     Indication: INFECTION
     Dosage: ?          OTHER FREQUENCY:Q8H;?
     Route: 041
     Dates: start: 20190609, end: 20190611
  6. MIDAZOLAM [Concomitant]
     Active Substance: MIDAZOLAM HYDROCHLORIDE
     Dates: start: 20190610, end: 20190610
  7. ROCURONIUM [Concomitant]
     Active Substance: ROCURONIUM BROMIDE
     Dates: start: 20190610, end: 20190610
  8. SUCCINYLCHOLINE [Concomitant]
     Active Substance: SUCCINYLCHOLINE
     Dates: start: 20190610, end: 20190610
  9. ZOSYN [Concomitant]
     Active Substance: PIPERACILLIN SODIUM\TAZOBACTAM SODIUM
     Dates: start: 20190609, end: 20190621
  10. ONDANSETRON (PRN) [Concomitant]
     Dates: start: 20190610, end: 20190621
  11. SUGAMMADEX [Concomitant]
     Active Substance: SUGAMMADEX
     Dates: start: 20190610, end: 20190610
  12. CEFAZOLIN [Concomitant]
     Active Substance: CEFAZOLIN
     Dates: start: 20190610, end: 20190610
  13. FAMOTIDINE (PRN) [Concomitant]
     Dates: start: 20190609, end: 20190621
  14. SCOPOLAMINE TRANSDERMAL PATCH [Concomitant]
     Active Substance: SCOPOLAMINE
     Dates: start: 20190610, end: 20190610
  15. BACITRACIN TOPICAL [Concomitant]
     Dates: start: 20190610, end: 20190610
  16. DIPHENHYDRAMINE. [Concomitant]
     Active Substance: DIPHENHYDRAMINE
     Dates: start: 20190610, end: 20190610
  17. FENTANYL. [Concomitant]
     Active Substance: FENTANYL
     Dates: start: 20190610, end: 20190610
  18. MUPIROCIN 2% OINTMENT [Concomitant]
     Active Substance: MUPIROCIN
     Dates: start: 20190610, end: 20190621
  19. LIDOCAINE HYDROCHLORIDE AND EPINEPHRINE BITARTRATE [Concomitant]
     Active Substance: EPINEPHRINE BITARTRATE\LIDOCAINE HYDROCHLORIDE
     Dates: start: 20190610, end: 20190610
  20. POLYSPORIN FIRST AID ANTIBIOTIC [Concomitant]
     Active Substance: BACITRACIN\POLYMYXIN B SULFATE
     Dates: start: 20190610, end: 20190610

REACTIONS (3)
  - Haemodialysis [None]
  - Renal impairment [None]
  - Blood creatinine increased [None]

NARRATIVE: CASE EVENT DATE: 20190610
